FAERS Safety Report 7537905-9 (Version None)
Quarter: 2011Q2

REPORT INFORMATION
  Report Type: 
  Country: None (occurrence: None)
  Receive Date: 20110609
  Receipt Date: 20110530
  Transmission Date: 20111010
  Serious: Yes (Other)
  Sender: FDA-Public Use
  Company Number: KR-UCBSA-031713

PATIENT
  Age: 56 Year
  Sex: Male

DRUGS (12)
  1. RANITIDINE [Concomitant]
  2. ACETAMINOPHEN [Concomitant]
  3. MAGNESIUM HYDROXIDE [Concomitant]
  4. AMLODIPINE NICOTINATE [Concomitant]
  5. ITOPRIDE HCL [Concomitant]
  6. LEVETIRACETAM [Suspect]
     Route: 048
  7. MEROPENEM [Concomitant]
     Route: 042
  8. URSODIOL [Concomitant]
  9. MANNITOL [Concomitant]
     Route: 042
  10. LEVETIRACETAM [Suspect]
     Indication: PARTIAL SEIZURES
     Route: 048
  11. STREPTODORNASE [Concomitant]
  12. BROMHEXINE HCL [Concomitant]

REACTIONS (1)
  - LEUKOCYTOSIS [None]
